FAERS Safety Report 8452924 (Version 2)
Quarter: 2013Q4

REPORT INFORMATION
  Report Type: Report from Study
  Country: FR (occurrence: FR)
  Receive Date: 20120312
  Receipt Date: 20131108
  Transmission Date: 20140711
  Serious: Yes (Hospitalization)
  Sender: FDA-Public Use
  Company Number: FR-JNJFOC-20120302691

PATIENT
  Age: 16 Year
  Sex: Male
  Weight: 59.4 kg

DRUGS (4)
  1. REMICADE [Suspect]
     Indication: CROHN^S DISEASE
     Route: 042
     Dates: start: 20030213
  2. HUMIRA [Concomitant]
     Indication: CROHN^S DISEASE
     Route: 065
     Dates: start: 20091026
  3. PREDNISONE [Concomitant]
     Indication: CROHN^S DISEASE
  4. MODULEN [Concomitant]
     Route: 048

REACTIONS (1)
  - Anal abscess [Recovered/Resolved]
